FAERS Safety Report 17673236 (Version 7)
Quarter: 2020Q2

REPORT INFORMATION
  Report Type: Report from Study
  Country: JP (occurrence: JP)
  Receive Date: 20200415
  Receipt Date: 20200619
  Transmission Date: 20200713
  Serious: Yes (Hospitalization)
  Sender: FDA-Public Use
  Company Number: JP-EISAI MEDICAL RESEARCH-EC-2020-073278

PATIENT
  Age: 75 Year
  Sex: Male
  Weight: 83.3 kg

DRUGS (21)
  1. LENVATINIB [Suspect]
     Active Substance: LENVATINIB
     Indication: HEPATOCELLULAR CARCINOMA
     Dosage: 12 MILLIGRAM (BODY WEIGHT (BW) GREATER OR EQUAL THAN 60 KG)
     Route: 048
     Dates: start: 20200317, end: 20200330
  2. PEMBROLIZUMAB. [Suspect]
     Active Substance: PEMBROLIZUMAB
     Dates: start: 20200428
  3. AMMONIUM GLYCYRRHIZATE (+) GLYCINE (+) RACEMETHIONINE [Concomitant]
     Dates: start: 20180330
  4. NIFEDIPINE. [Concomitant]
     Active Substance: NIFEDIPINE
     Dates: start: 20150206
  5. METFORMIN HYDROCHLORIDE. [Concomitant]
     Active Substance: METFORMIN HYDROCHLORIDE
     Dates: start: 20190829
  6. PEMBROLIZUMAB. [Suspect]
     Active Substance: PEMBROLIZUMAB
     Dates: start: 20200407, end: 20200407
  7. LEVOFLOXACIN. [Concomitant]
     Active Substance: LEVOFLOXACIN
     Dates: start: 20200331, end: 20200406
  8. PEMBROLIZUMAB. [Suspect]
     Active Substance: PEMBROLIZUMAB
     Indication: HEPATOCELLULAR CARCINOMA
     Dates: start: 20200317, end: 20200317
  9. SODIUM GUALENATE [Concomitant]
     Active Substance: SODIUM GUALENATE
     Dates: start: 20200331
  10. URSODIOL. [Concomitant]
     Active Substance: URSODIOL
     Dates: start: 20200117
  11. VONOPRAZAN FUMARATE [Concomitant]
     Active Substance: VONOPRAZAN FUMARATE
     Dates: start: 20200324
  12. DEXAMETHASONE. [Concomitant]
     Active Substance: DEXAMETHASONE
     Dates: start: 20200331
  13. CANAGLIFLOZIN [Concomitant]
     Active Substance: CANAGLIFLOZIN
     Dates: start: 20190523
  14. UREA. [Concomitant]
     Active Substance: UREA
     Dates: start: 20200317
  15. LENVATINIB [Suspect]
     Active Substance: LENVATINIB
     Dosage: 12 MILLIGRAM (BODY WEIGHT (BW) GREATER OR EQUAL THAN 60 KG)
     Route: 048
     Dates: start: 20200407, end: 20200408
  16. LENVATINIB [Suspect]
     Active Substance: LENVATINIB
     Dosage: STARTING DOSE AT 8 MG QD, FLUCTUATED DOSAGE
     Route: 048
     Dates: start: 20200422
  17. DIFLUPREDNATE [Concomitant]
     Active Substance: DIFLUPREDNATE
     Dates: start: 20200331
  18. HYDROCHLOROTHIAZIDE (+) TELMISARTAN [Concomitant]
     Active Substance: HYDROCHLOROTHIAZIDE\TELMISARTAN
     Dates: start: 20150331
  19. OTSUKA ENORAS [Concomitant]
     Dates: start: 20200331
  20. BISOPROLOL FUMARATE. [Concomitant]
     Active Substance: BISOPROLOL FUMARATE
     Dates: start: 20150206
  21. KETOPROFEN. [Concomitant]
     Active Substance: KETOPROFEN
     Dates: start: 20131126

REACTIONS (1)
  - Tumour lysis syndrome [Recovered/Resolved]

NARRATIVE: CASE EVENT DATE: 20200407
